FAERS Safety Report 17885705 (Version 2)
Quarter: 2020Q2

REPORT INFORMATION
  Report Type: Report from Study
  Country: AR (occurrence: AR)
  Receive Date: 20200611
  Receipt Date: 20200616
  Transmission Date: 20200714
  Serious: Yes (Death)
  Sender: FDA-Public Use
  Company Number: NVSC2020AR162708

PATIENT
  Sex: Female

DRUGS (1)
  1. AFINITOR [Suspect]
     Active Substance: EVEROLIMUS
     Indication: BREAST CANCER
     Dosage: 10 MG, QD
     Route: 065
     Dates: start: 20160918

REACTIONS (5)
  - Metastases to central nervous system [Fatal]
  - Paralysis [Fatal]
  - Anaemia [Unknown]
  - Muscle spasms [Fatal]
  - Metastases to eye [Fatal]
